FAERS Safety Report 10188139 (Version 1)
Quarter: 2014Q2

REPORT INFORMATION
  Report Type: Spontaneous
  Country: US (occurrence: US)
  Receive Date: 20140522
  Receipt Date: 20140522
  Transmission Date: 20141212
  Serious: No
  Sender: FDA-Public Use
  Company Number: US-SA-2013SA101517

PATIENT
  Sex: Female

DRUGS (1)
  1. LANTUS [Suspect]
     Dosage: DOSE:44 UNIT(S)
     Route: 042

REACTIONS (2)
  - Post procedural haemorrhage [Unknown]
  - Incorrect route of drug administration [Unknown]
